FAERS Safety Report 9234098 (Version 1)
Quarter: 2013Q2

REPORT INFORMATION
  Report Type: Spontaneous
  Country: US (occurrence: US)
  Receive Date: 20130416
  Receipt Date: 20130416
  Transmission Date: 20140414
  Serious: No
  Sender: FDA-Public Use
  Company Number: US-BAYER-2013-045689

PATIENT
  Age: 66 Year
  Sex: Male
  Weight: 88 kg

DRUGS (9)
  1. ALEVE CAPLET [Suspect]
     Indication: ARTHRITIS
     Dosage: 3 DF, ONCE
     Route: 048
     Dates: start: 20130402, end: 20130402
  2. BAYER ASPIRIN [Concomitant]
  3. PLAVIX [Concomitant]
  4. SIMVASTATIN [Concomitant]
  5. GLYBURIDE [Concomitant]
  6. ACTOS-PIOGLITAZONE [Concomitant]
  7. DIVALPROEX [Concomitant]
  8. INSULIN [Concomitant]
  9. LOVASTATIN [Concomitant]

REACTIONS (3)
  - Hyperhidrosis [Recovered/Resolved]
  - Dyspnoea [Recovered/Resolved]
  - Expired drug administered [None]
